FAERS Safety Report 9975697 (Version 1)
Quarter: 2014Q1

REPORT INFORMATION
  Report Type: Report from Study
  Country: US (occurrence: US)
  Receive Date: 20140306
  Receipt Date: 20140306
  Transmission Date: 20141002
  Serious: No
  Sender: FDA-Public Use
  Company Number: US-ABBVIE-13P-163-1160441-00

PATIENT
  Age: 76 Year
  Sex: Female

DRUGS (8)
  1. HUMIRA [Suspect]
     Indication: CROHN^S DISEASE
     Dates: start: 20131002, end: 20131002
  2. HUMIRA [Suspect]
     Dates: start: 20131016, end: 20131016
  3. LEVOTHYROXINE [Concomitant]
     Indication: THYROID DISORDER
  4. LISINOPRIL [Concomitant]
     Indication: HYPERTENSION
  5. LOVASTATIN [Concomitant]
     Indication: BLOOD CHOLESTEROL INCREASED
  6. METRONIDAZOLE [Concomitant]
     Indication: ROSACEA
  7. SERTRALIN [Concomitant]
     Indication: DEPRESSION
  8. TOPICAL PATCH [Concomitant]
     Indication: ARTHROPATHY

REACTIONS (3)
  - Frequent bowel movements [Not Recovered/Not Resolved]
  - Haematochezia [Not Recovered/Not Resolved]
  - Drug ineffective [Not Recovered/Not Resolved]
